FAERS Safety Report 14016106 (Version 2)
Quarter: 2017Q4

REPORT INFORMATION
  Report Type: Spontaneous
  Country: US (occurrence: US)
  Receive Date: 20170927
  Receipt Date: 20171024
  Transmission Date: 20180321
  Serious: Yes (Other)
  Sender: FDA-Public Use
  Company Number: US-TEVA-808885ACC

PATIENT
  Age: 21 Year
  Sex: Female
  Weight: 55.84 kg

DRUGS (2)
  1. PARAGARD T 380A [Suspect]
     Active Substance: COPPER
     Dates: start: 20170921
  2. PARAGARD T 380A [Suspect]
     Active Substance: COPPER
     Indication: CONTRACEPTION
     Dates: start: 20170810, end: 20170911

REACTIONS (4)
  - Device dislocation [Recovered/Resolved]
  - Device expulsion [Recovered/Resolved]
  - Pain [Unknown]
  - Muscle spasms [Recovered/Resolved]

NARRATIVE: CASE EVENT DATE: 20170810
